FAERS Safety Report 13615245 (Version 1)
Quarter: 2017Q2

REPORT INFORMATION
  Report Type: Spontaneous
  Country: US (occurrence: US)
  Receive Date: 20170605
  Receipt Date: 20170605
  Transmission Date: 20170830
  Serious: Yes (Other)
  Sender: FDA-Public Use
  Company Number: None

PATIENT
  Age: 54 Year
  Sex: Male

DRUGS (2)
  1. FENTANYL. [Suspect]
     Active Substance: FENTANYL
     Indication: OSTEOARTHRITIS
     Dosage: 1 PATCH EVERY 72 HRS. ONTO THE SKIN
     Route: 061
  2. FENTANYL. [Suspect]
     Active Substance: FENTANYL
     Indication: ADDISON^S DISEASE
     Dosage: 1 PATCH EVERY 72 HRS. ONTO THE SKIN
     Route: 061

REACTIONS (2)
  - Product quality issue [None]
  - Drug effect decreased [None]

NARRATIVE: CASE EVENT DATE: 20170603
